FAERS Safety Report 22808812 (Version 4)
Quarter: 2023Q4

REPORT INFORMATION
  Report Type: Spontaneous
  Country: US (occurrence: US)
  Receive Date: 20230810
  Receipt Date: 20231120
  Transmission Date: 20240109
  Serious: Yes (Death)
  Sender: FDA-Public Use
  Company Number: US-PFIZER INC-202300272676

PATIENT
  Age: 79 Year
  Sex: Male
  Weight: 68.027 kg

DRUGS (14)
  1. VYNDAMAX [Suspect]
     Active Substance: TAFAMIDIS
     Indication: Amyloidosis
     Dosage: 61 MG
  2. VYNDAMAX [Suspect]
     Active Substance: TAFAMIDIS
     Dosage: 20 MG 1ST DAY
     Dates: start: 202204, end: 202308
  3. FUROSEMIDE [Concomitant]
     Active Substance: FUROSEMIDE
     Dosage: 40 MG
     Dates: start: 202204
  4. ELIQUIS [Concomitant]
     Active Substance: APIXABAN
     Dosage: 5 MG
     Dates: start: 202204
  5. AMIODARONE [Concomitant]
     Active Substance: AMIODARONE
     Dosage: 100 MG
     Dates: start: 202204
  6. DOXAZOSIN [Concomitant]
     Active Substance: DOXAZOSIN MESYLATE
     Dosage: 4 MG
     Dates: start: 202204
  7. FARXIGA [Concomitant]
     Active Substance: DAPAGLIFLOZIN PROPANEDIOL
     Dosage: 10 MG
     Dates: start: 202204, end: 202207
  8. MIDODRINE [Concomitant]
     Active Substance: MIDODRINE
     Dosage: 10 MG
     Dates: start: 202204
  9. LORAZEPAM [Concomitant]
     Active Substance: LORAZEPAM
     Dosage: 5 MG
     Dates: start: 202204
  10. LASIX [Concomitant]
     Active Substance: FUROSEMIDE
     Dosage: 20 MG
     Dates: start: 202204
  11. POTASSIUM [Concomitant]
     Active Substance: POTASSIUM
     Dosage: 4 MG
     Dates: start: 202204
  12. SIMVASTATIN [Concomitant]
     Active Substance: SIMVASTATIN
     Dosage: 40 MG
     Dates: start: 202204, end: 202308
  13. CHOLECALCIFEROL [Concomitant]
     Active Substance: CHOLECALCIFEROL
     Dosage: UNK
     Dates: start: 202204
  14. ZOCOR [Concomitant]
     Active Substance: SIMVASTATIN
     Dosage: 40 MG
     Dates: start: 202204

REACTIONS (8)
  - Death [Fatal]
  - Dyspnoea [Unknown]
  - Hyperhidrosis [Unknown]
  - Fatigue [Unknown]
  - Tremor [Unknown]
  - Dizziness [Unknown]
  - Blood pressure decreased [Unknown]
  - Wrong strength [Unknown]

NARRATIVE: CASE EVENT DATE: 20230808
